FAERS Safety Report 17253239 (Version 1)
Quarter: 2019Q4

REPORT INFORMATION
  Report Type: Spontaneous
  Country: US (occurrence: US)
  Receive Date: 20191216
  Receipt Date: 20191216
  Transmission Date: 20200122
  Serious: Yes (Hospitalization)
  Sender: FDA-Public Use
  Company Number: None

PATIENT
  Age: 83 Year
  Sex: Female

DRUGS (11)
  1. SERTRALINE [Concomitant]
     Active Substance: SERTRALINE HYDROCHLORIDE
  2. URSODIOL. [Concomitant]
     Active Substance: URSODIOL
  3. OCALIVA [Suspect]
     Active Substance: OBETICHOLIC ACID
     Indication: PRIMARY BILIARY CHOLANGITIS
     Route: 048
     Dates: start: 20180402
  4. MONTELUKAST [Concomitant]
     Active Substance: MONTELUKAST SODIUM
  5. OMEPRAZOLE. [Concomitant]
     Active Substance: OMEPRAZOLE
  6. PRAVASTATIN. [Concomitant]
     Active Substance: PRAVASTATIN
  7. LORAZEPAM. [Concomitant]
     Active Substance: LORAZEPAM
  8. FLUTICASONE SPR [Concomitant]
  9. MYRBETRIQ [Concomitant]
     Active Substance: MIRABEGRON
  10. GABAPENTIN. [Concomitant]
     Active Substance: GABAPENTIN
  11. BUPRON HCL [Concomitant]

REACTIONS (2)
  - Concussion [None]
  - Fall [None]

NARRATIVE: CASE EVENT DATE: 20191213
